FAERS Safety Report 20495835 (Version 1)
Quarter: 2022Q1

REPORT INFORMATION
  Report Type: Spontaneous
  Country: CA (occurrence: CA)
  Receive Date: 20220221
  Receipt Date: 20220221
  Transmission Date: 20220423
  Serious: Yes (Hospitalization)
  Sender: FDA-Public Use
  Company Number: None

PATIENT
  Age: 43 Year
  Sex: Female

DRUGS (10)
  1. XOLAIR [Suspect]
     Active Substance: OMALIZUMAB
     Indication: Chronic spontaneous urticaria
     Dosage: 300 MG, QW (1 EVERY 1 WEEK)
     Route: 058
  2. XOLAIR [Suspect]
     Active Substance: OMALIZUMAB
     Dosage: 300 MG, 1 EVERY 4 WEEK
     Route: 058
  3. CLONAZEPAM [Suspect]
     Active Substance: CLONAZEPAM
     Indication: Urticaria
     Dosage: 1 DOSAGE FORM, QD
     Route: 048
  4. CLONAZEPAM [Suspect]
     Active Substance: CLONAZEPAM
     Indication: Pruritus
  5. CLONAZEPAM [Suspect]
     Active Substance: CLONAZEPAM
     Indication: Pneumonia
  6. CLONAZEPAM [Suspect]
     Active Substance: CLONAZEPAM
     Indication: Night sweats
  7. CLONAZEPAM [Suspect]
     Active Substance: CLONAZEPAM
     Indication: Middle insomnia
  8. CLONAZEPAM [Suspect]
     Active Substance: CLONAZEPAM
     Indication: Malaise
  9. CLONAZEPAM [Suspect]
     Active Substance: CLONAZEPAM
     Indication: Cardiac infection
  10. CLONAZEPAM [Suspect]
     Active Substance: CLONAZEPAM
     Indication: Anxiety

REACTIONS (8)
  - Middle insomnia [Unknown]
  - Cardiac infection [Unknown]
  - Dyspnoea [Unknown]
  - Malaise [Unknown]
  - Night sweats [Unknown]
  - Pneumonia [Unknown]
  - Pruritus [Unknown]
  - Urticaria [Unknown]
